FAERS Safety Report 4688756-4 (Version None)
Quarter: 2005Q2

REPORT INFORMATION
  Report Type: 
  Country: None (occurrence: None)
  Receive Date: 20050609
  Receipt Date: 20050609
  Transmission Date: 20051028
  Serious: Yes (Hospitalization)
  Sender: FDA-Public Use
  Company Number: None

PATIENT
  Age: 73 Year
  Sex: Male
  Weight: 81 kg

DRUGS (1)
  1. METHYLPREDNISOLONE [Suspect]
     Indication: PNEUMONIA
     Dosage: 12.5 MG IV Q 6 H X 4 -} Q 8 H, Q8 H -} 40Q 12 H WITH FOOD
     Route: 042
     Dates: start: 20050301

REACTIONS (1)
  - MYOPATHY STEROID [None]
